FAERS Safety Report 21224406 (Version 2)
Quarter: 2023Q2

REPORT INFORMATION
  Report Type: Spontaneous
  Country: CA (occurrence: CA)
  Receive Date: 20220817
  Receipt Date: 20230509
  Transmission Date: 20230722
  Serious: Yes (Life-Threatening, Hospitalization)
  Sender: FDA-Public Use
  Company Number: CA-ANIPHARMA-2022-CA-001635

PATIENT
  Age: 77 Year
  Sex: Male

DRUGS (11)
  1. CASODEX [Suspect]
     Active Substance: BICALUTAMIDE
     Indication: Prostate cancer metastatic
     Dosage: 50 MG QD
     Route: 048
     Dates: start: 20220306, end: 20220316
  2. TAMSULOSIN [Concomitant]
     Active Substance: TAMSULOSIN
     Route: 065
  3. WARFARIN [Concomitant]
     Active Substance: WARFARIN
     Route: 065
  4. ROSUVASTATIN [Concomitant]
     Active Substance: ROSUVASTATIN
     Route: 065
  5. ASPIRIN [Concomitant]
     Active Substance: ASPIRIN
     Route: 065
  6. BRYONIA ALBA [Suspect]
     Active Substance: BRYONIA ALBA ROOT
     Route: 065
  7. FINASTERIDE [Concomitant]
     Active Substance: FINASTERIDE
     Route: 065
  8. FERROUS SULFATE ANHYDROUS [Concomitant]
     Active Substance: FERROUS SULFATE ANHYDROUS
     Route: 065
  9. LEUPROLIDE [Suspect]
     Active Substance: LEUPROLIDE
     Route: 065
  10. METOPROLOL [Suspect]
     Active Substance: METOPROLOL
     Route: 065
  11. PERINDOPRIL [Suspect]
     Active Substance: PERINDOPRIL
     Route: 065

REACTIONS (3)
  - Chromaturia [Recovering/Resolving]
  - Faeces pale [Recovering/Resolving]
  - Hepatitis acute [Recovering/Resolving]
